FAERS Safety Report 4616547-9 (Version None)
Quarter: 2005Q1

REPORT INFORMATION
  Report Type: 
  Country: None (occurrence: None)
  Receive Date: 20050318
  Receipt Date: 20050302
  Transmission Date: 20050727
  Serious: Yes (Death, Hospitalization)
  Sender: FDA-Public Use
  Company Number: L04-USA-07403-24

PATIENT
  Age: 30 Year
  Sex: Female

DRUGS (4)
  1. LEXAPRO [Suspect]
     Dosage: 340 MG ONCE PO
     Route: 048
  2. BUPROPION HYDROCHLORIDE [Suspect]
     Dosage: 2550 MG ONCE PO
     Route: 048
  3. PAROXETINE HCL [Suspect]
     Dosage: 340 MG ONCE PO
     Route: 048
  4. CLONAZEPAM [Suspect]
     Dosage: 8.5 MG ONCE PO
     Route: 048

REACTIONS (10)
  - BLOOD PRESSURE DECREASED [None]
  - CARDIAC ARREST [None]
  - COMPLETED SUICIDE [None]
  - CONVULSION [None]
  - EJECTION FRACTION DECREASED [None]
  - INTENTIONAL MISUSE [None]
  - MENTAL STATUS CHANGES [None]
  - NAUSEA [None]
  - NERVOUS SYSTEM DISORDER [None]
  - VENTRICULAR DYSFUNCTION [None]
